APPROVED DRUG PRODUCT: POTASSIUM PHOSPHATES
Active Ingredient: POTASSIUM PHOSPHATE, DIBASIC; POTASSIUM PHOSPHATE, MONOBASIC
Strength: 4.5GM/15ML (300MG/ML);2.65GM/15ML (175MG/ML)
Dosage Form/Route: SOLUTION;INTRAVENOUS
Application: N212121 | Product #001
Applicant: CMP DEVELOPMENT LLC
Approved: Sep 19, 2019 | RLD: Yes | RS: No | Type: DISCN

PATENTS:
Patent 10632150 | Expires: Apr 19, 2039